FAERS Safety Report 19467744 (Version 1)
Quarter: 2021Q2

REPORT INFORMATION
  Report Type: Spontaneous
  Country: US (occurrence: US)
  Receive Date: 20210628
  Receipt Date: 20210628
  Transmission Date: 20210717
  Serious: Yes (Hospitalization)
  Sender: FDA-Public Use
  Company Number: None

PATIENT
  Sex: Female

DRUGS (14)
  1. ATORVASTATIN [Concomitant]
     Active Substance: ATORVASTATIN
  2. LOSARTAN POT [Concomitant]
     Active Substance: LOSARTAN POTASSIUM
  3. ASPIRIN 81 [Concomitant]
     Active Substance: ASPIRIN
  4. CYCLOBENZAPR [Concomitant]
     Active Substance: CYCLOBENZAPRINE
  5. GABAPENTIN. [Concomitant]
     Active Substance: GABAPENTIN
  6. ZOLPIDEM ER [Concomitant]
     Active Substance: ZOLPIDEM TARTRATE
  7. EZETIMBE [Concomitant]
     Active Substance: EZETIMIBE
  8. REPATHA [Suspect]
     Active Substance: EVOLOCUMAB
     Indication: ARTERIOSCLEROSIS CORONARY ARTERY
     Route: 058
     Dates: start: 20190122
  9. DULOXETINE. [Concomitant]
     Active Substance: DULOXETINE
  10. ACETAMIN [Concomitant]
     Active Substance: ACETAMINOPHEN
  11. AMLODIPINE [Concomitant]
     Active Substance: AMLODIPINE BESYLATE
  12. CLOBETASOL CRE [Concomitant]
  13. FIORICET [Concomitant]
     Active Substance: ACETAMINOPHEN\BUTALBITAL\CAFFEINE
  14. FUROSEMIDE. [Concomitant]
     Active Substance: FUROSEMIDE

REACTIONS (2)
  - Cardiac failure congestive [None]
  - Dyspnoea [None]
